FAERS Safety Report 21359155 (Version 1)
Quarter: 2022Q3

REPORT INFORMATION
  Report Type: Spontaneous
  Country: DE (occurrence: DE)
  Receive Date: 20220921
  Receipt Date: 20220921
  Transmission Date: 20221026
  Serious: Yes (Other)
  Sender: FDA-Public Use
  Company Number: DE-SANOFI-00677982

PATIENT
  Sex: Male

DRUGS (3)
  1. PREGABALIN [Suspect]
     Active Substance: PREGABALIN
     Indication: Type 1 diabetes mellitus
     Route: 065
  2. TOUJEO [Suspect]
     Active Substance: INSULIN GLARGINE
     Indication: Type 1 diabetes mellitus
     Dosage: UNK
  3. APIDRA SOLOSTAR [Suspect]
     Active Substance: INSULIN GLULISINE
     Indication: Type 1 diabetes mellitus

REACTIONS (3)
  - Blood glucose fluctuation [Recovered/Resolved]
  - Dizziness [Recovered/Resolved]
  - Off label use [Unknown]
